FAERS Safety Report 6537569-7 (Version None)
Quarter: 2010Q1

REPORT INFORMATION
  Report Type: 
  Country: None (occurrence: None)
  Receive Date: 20100114
  Receipt Date: 20100106
  Transmission Date: 20100710
  Serious: Yes (Hospitalization)
  Sender: FDA-Public Use
  Company Number: KR-ROCHE-674436

PATIENT
  Sex: Female
  Weight: 56 kg

DRUGS (4)
  1. TRASTUZUMAB [Suspect]
     Dosage: FORM: VIALS; DOSE LEVEL: 6 MG/KG; DATE OF LAST DOSE PRIOR TO SAE: 24 DECEMBER 2009.
     Route: 042
     Dates: start: 20091112
  2. BEVACIZUMAB [Suspect]
     Dosage: FORM: VIALS; DATE OF LAST DOSE PRIOR TO SAE: 24 DECEMBER 2009; DOSE LEVEL: 15 MG/KG.
     Route: 042
     Dates: start: 20091112
  3. DOCETAXEL [Suspect]
     Dosage: FORM: VIALS; DOSE LEVEL: 75 MG/ME2; DATE OF LAST DOSE PRIOR TO SAE: 24 DECEMBER 2009.
     Route: 042
     Dates: start: 20091112
  4. CARBOPLATIN [Suspect]
     Dosage: FORM: VIALS; DATE OF LAST DOSE PRIOR TO SAE: 24 DECEMBER 2009; DOSE LEVEL: 6 AUC.
     Route: 042
     Dates: start: 20091112

REACTIONS (10)
  - ANXIETY [None]
  - BLOOD ALBUMIN DECREASED [None]
  - BLOOD POTASSIUM DECREASED [None]
  - BLOOD SODIUM DECREASED [None]
  - DECREASED APPETITE [None]
  - NAUSEA [None]
  - NEUTROPENIA [None]
  - REFUSAL OF TREATMENT BY PATIENT [None]
  - VOMITING [None]
  - WEIGHT DECREASED [None]
